FAERS Safety Report 5139890-6 (Version None)
Quarter: 2006Q4

REPORT INFORMATION
  Report Type: 
  Country: None (occurrence: None)
  Receive Date: 20061025
  Receipt Date: 20061025
  Transmission Date: 20070319
  Serious: Yes (Hospitalization)
  Sender: FDA-Public Use
  Company Number: None

PATIENT
  Age: 80 Year
  Sex: Male
  Weight: 98.4 kg

DRUGS (2)
  1. SALSALATE [Suspect]
     Indication: PAIN
     Dosage: 750MG BID PRN
     Dates: start: 20050325, end: 20060824
  2. COLCHICINE [Concomitant]

REACTIONS (1)
  - GASTROINTESTINAL HAEMORRHAGE [None]
